FAERS Safety Report 17276700 (Version 1)
Quarter: 2020Q1

REPORT INFORMATION
  Report Type: Spontaneous
  Country: US (occurrence: US)
  Receive Date: 20200115
  Receipt Date: 20200115
  Transmission Date: 20200409
  Serious: Yes (Hospitalization)
  Sender: FDA-Public Use
  Company Number: None

PATIENT
  Age: 44 Year
  Sex: Female
  Weight: 84.15 kg

DRUGS (4)
  1. PREDNISONE 20MG [Concomitant]
     Active Substance: PREDNISONE
     Dates: start: 20200114
  2. FELODIPINE 10 MG [Concomitant]
     Active Substance: FELODIPINE
     Dates: start: 20191209
  3. PEMBROLIZUMAB. [Suspect]
     Active Substance: PEMBROLIZUMAB
     Indication: CERVIX CARCINOMA
     Dosage: ?          OTHER FREQUENCY:EVERY 21 DAYS;?
     Route: 042
     Dates: start: 20190322, end: 20191205
  4. LOSARTAN 50 MG [Concomitant]
     Active Substance: LOSARTAN
     Dates: start: 20191017

REACTIONS (4)
  - Hypokalaemia [None]
  - Anaemia [None]
  - Acute kidney injury [None]
  - Renal impairment [None]

NARRATIVE: CASE EVENT DATE: 20200109
